FAERS Safety Report 23464701 (Version 5)
Quarter: 2024Q1

REPORT INFORMATION
  Report Type: Spontaneous
  Country: US (occurrence: US)
  Receive Date: 20240201
  Receipt Date: 20240221
  Transmission Date: 20240410
  Serious: No
  Sender: FDA-Public Use
  Company Number: US-ELI_LILLY_AND_COMPANY-US202401018059

PATIENT
  Age: 66 Year
  Sex: Female

DRUGS (4)
  1. TRULICITY [Suspect]
     Active Substance: DULAGLUTIDE
     Indication: Diabetes mellitus
     Dosage: 0.75 MG, UNKNOWN
     Route: 065
     Dates: start: 2021
  2. TRULICITY [Suspect]
     Active Substance: DULAGLUTIDE
     Dosage: 1.5 MG, WEEKLY (1/W)
     Route: 065
     Dates: start: 20230628
  3. METFORMIN [Concomitant]
     Active Substance: METFORMIN HYDROCHLORIDE
     Indication: Diabetes mellitus
     Dosage: UNK, UNKNOWN
     Route: 065
  4. NEVOLOLON [Concomitant]
     Indication: Cardiac disorder
     Dosage: UNK, UNKNOWN
     Route: 065

REACTIONS (11)
  - Thyroid hormones decreased [Unknown]
  - Drug intolerance [Unknown]
  - Nausea [Unknown]
  - Decreased appetite [Recovered/Resolved]
  - Dyspepsia [Recovered/Resolved]
  - Abdominal pain upper [Recovered/Resolved]
  - Vomiting [Recovered/Resolved]
  - Fatigue [Unknown]
  - Drug ineffective [Unknown]
  - Abdominal pain [Recovered/Resolved]
  - Constipation [Recovered/Resolved]

NARRATIVE: CASE EVENT DATE: 20240131
